FAERS Safety Report 10275766 (Version 1)
Quarter: 2014Q3

REPORT INFORMATION
  Report Type: Spontaneous
  Country: US (occurrence: None)
  Receive Date: 20140701
  Receipt Date: 20140701
  Transmission Date: 20150326
  Serious: No
  Sender: FDA-Public Use
  Company Number: None

PATIENT
  Age: 82 Year
  Sex: Female
  Weight: 79.38 kg

DRUGS (18)
  1. CLONIDINE HCL [Concomitant]
     Active Substance: CLONIDINE HYDROCHLORIDE
  2. OXYBUTYNIN [Concomitant]
     Active Substance: OXYBUTYNIN
  3. HYDRACODONE [Concomitant]
  4. FLAXSEED [Concomitant]
     Active Substance: FLAX SEED
  5. VIT. B [Concomitant]
  6. ZYRTEC [Concomitant]
     Active Substance: CETIRIZINE HYDROCHLORIDE
  7. VITAMIN D [Concomitant]
     Active Substance: CHOLECALCIFEROL
  8. VIT. B12 [Concomitant]
  9. CURCUMIM [Concomitant]
  10. LEVOTHROID [Concomitant]
     Active Substance: LEVOTHYROXINE SODIUM
  11. CRESTOR [Concomitant]
     Active Substance: ROSUVASTATIN CALCIUM
  12. ASA [Concomitant]
     Active Substance: ASPIRIN
  13. CLONAZEPAM. [Concomitant]
     Active Substance: CLONAZEPAM
  14. MULTIVITAMIN [Concomitant]
     Active Substance: VITAMINS
  15. VITAMIN C [Concomitant]
     Active Substance: ASCORBIC ACID
  16. LEXISCAN [Suspect]
     Active Substance: REGADENOSON
     Dates: start: 20140508, end: 20140508
  17. RANITIDINE [Concomitant]
     Active Substance: RANITIDINE\RANITIDINE HYDROCHLORIDE
  18. ALPRAZALAM [Concomitant]

REACTIONS (6)
  - Panic reaction [None]
  - Burning sensation [None]
  - Pain [None]
  - Angina pectoris [None]
  - Chest pain [None]
  - Asthenia [None]

NARRATIVE: CASE EVENT DATE: 20140508
